FAERS Safety Report 17700829 (Version 6)
Quarter: 2020Q2

REPORT INFORMATION
  Report Type: Spontaneous
  Country: US (occurrence: US)
  Receive Date: 20200424
  Receipt Date: 20200609
  Transmission Date: 20200714
  Serious: Yes (Hospitalization)
  Sender: FDA-Public Use
  Company Number: US-ACTELION-A-NJ2020-203400

PATIENT
  Sex: Female
  Weight: 58.05 kg

DRUGS (3)
  1. WARFARIN [Concomitant]
     Active Substance: WARFARIN
  2. OXYGEN. [Concomitant]
     Active Substance: OXYGEN
  3. VELETRI [Suspect]
     Active Substance: EPOPROSTENOL
     Indication: PULMONARY HYPERTENSION
     Dosage: 10 NG/KG, PER MIN
     Route: 042

REACTIONS (7)
  - Device programming error [Unknown]
  - Hospitalisation [Unknown]
  - Device occlusion [Unknown]
  - Oxygen consumption [Not Recovered/Not Resolved]
  - Extremity necrosis [Unknown]
  - Respiratory distress [Unknown]
  - Hypotension [Unknown]
